FAERS Safety Report 9354264 (Version 1)
Quarter: 2013Q2

REPORT INFORMATION
  Report Type: Spontaneous
  Country: IN (occurrence: None)
  Receive Date: 20130613
  Receipt Date: 20130613
  Transmission Date: 20140414
  Serious: Yes (Hospitalization)
  Sender: FDA-Public Use
  Company Number: B0898223A

PATIENT
  Age: 62 Year
  Sex: Male

DRUGS (6)
  1. BUPROPION HYDROCHLORIDE [Suspect]
     Indication: EX-TOBACCO USER
  2. HALOPERIDOL [Concomitant]
  3. GLICLAZIDE [Concomitant]
  4. METFORMIN HYDROCHLORIDE [Concomitant]
  5. AMLODIPINE [Concomitant]
  6. LOSARTAN POTASSIUM? [Concomitant]

REACTIONS (4)
  - Depression [None]
  - Aggression [None]
  - Persecutory delusion [None]
  - Irritability [None]
